FAERS Safety Report 6290732-5 (Version None)
Quarter: 2009Q3

REPORT INFORMATION
  Report Type: 
  Country: None (occurrence: None)
  Receive Date: 20090730
  Receipt Date: 20090720
  Transmission Date: 20100115
  Serious: Yes (Life-Threatening)
  Sender: FDA-Public Use
  Company Number: FR-WYE-H10326909

PATIENT
  Sex: Male

DRUGS (5)
  1. CORDARONE [Suspect]
     Route: 048
  2. TAHOR [Suspect]
     Route: 048
  3. ALLOPURINOL [Suspect]
     Route: 048
  4. PREVISCAN [Suspect]
     Route: 048
     Dates: end: 20071025
  5. LEVOTHYROX [Suspect]
     Route: 048

REACTIONS (2)
  - CARDIAC TAMPONADE [None]
  - PERICARDIAL HAEMORRHAGE [None]
